FAERS Safety Report 4314357-3 (Version None)
Quarter: 2004Q1

REPORT INFORMATION
  Report Type: 
  Country: None (occurrence: None)
  Receive Date: 20040308
  Receipt Date: 20040224
  Transmission Date: 20041129
  Serious: Yes (Hospitalization)
  Sender: FDA-Public Use
  Company Number: 2004012741

PATIENT
  Sex: Female
  Weight: 95.2554 kg

DRUGS (1)
  1. DIFLUCAN [Suspect]
     Indication: FUNGAL INFECTION
     Dosage: 150 MG, ORAL
     Route: 048

REACTIONS (8)
  - ALOPECIA [None]
  - DISEASE RECURRENCE [None]
  - EYE DISORDER [None]
  - EYE REDNESS [None]
  - EYE SWELLING [None]
  - FUNGAL INFECTION [None]
  - HYPERSENSITIVITY [None]
  - KNEE ARTHROPLASTY [None]
